FAERS Safety Report 12835821 (Version 2)
Quarter: 2016Q4

REPORT INFORMATION
  Report Type: Spontaneous
  Country: ZA (occurrence: ZA)
  Receive Date: 20161011
  Receipt Date: 20161013
  Transmission Date: 20170207
  Serious: Yes (Hospitalization, Other)
  Sender: FDA-Public Use
  Company Number: ZA-PFIZER INC-2016470771

PATIENT
  Age: 71 Year
  Sex: Male

DRUGS (11)
  1. JANUMET [Concomitant]
     Active Substance: METFORMIN HYDROCHLORIDE\SITAGLIPTIN PHOSPHATE
     Dosage: 50/1000 1, 2X/DAY REPEAT MONTHLY X 6 MONTHS
     Route: 048
  2. NOVORAPID [Concomitant]
     Active Substance: INSULIN ASPART
     Dosage: 7, 3X/DAY REPEAT MONTHLY X 6 MONTHS
     Route: 058
  3. LASIX [Concomitant]
     Active Substance: FUROSEMIDE
     Dosage: 125 MG, DAILY REPEAT ONLY 6 MONTHS
     Route: 048
  4. PLENISH-K [Concomitant]
     Dosage: 2 TABS 2X/DAY REPEAT X6 MONTHS
     Route: 048
  5. DIAGLUCIDE [Concomitant]
     Dosage: 60 MG, 2X/DAY REPEAT MONTHLY X 6 MONTHS
     Route: 048
  6. SOLMUCOL [Concomitant]
     Active Substance: ACETYLCYSTEINE
     Dosage: 400 MG, 2X/DAY DISSOLVE IN WATER X 3 DAYS
  7. PURATA [Concomitant]
     Dosage: 30 MG, 1X/DAY NOCTE REPEAT MONTHLY X 6 MONTHS
     Route: 048
  8. LEVEMIR [Concomitant]
     Active Substance: INSULIN DETEMIR
     Dosage: 16, 1X/DAY NOCTE REPEAT MONTHLY X 6 MONTHS
     Route: 058
  9. REVATIO [Suspect]
     Active Substance: SILDENAFIL CITRATE
     Indication: PULMONARY HYPERTENSION
     Dosage: 80 MG, 3X/DAY REPEAT MONTHLY X 6 MONTHS
  10. INEGY [Concomitant]
     Active Substance: EZETIMIBE\SIMVASTATIN
     Indication: BLOOD CHOLESTEROL
     Dosage: 10/20, 1X/DAY (NOCTE) REPEAT X6 MONTHS
     Route: 048
  11. PURICOS [Concomitant]
     Active Substance: ALLOPURINOL
     Dosage: 300 MG, DAILY REPEAT MONTHLY X 6 MONTHS
     Route: 048

REACTIONS (9)
  - Haemorrhage [Unknown]
  - Swelling [Unknown]
  - Abdominal discomfort [Unknown]
  - Epistaxis [Not Recovered/Not Resolved]
  - Prescribed overdose [Unknown]
  - Blood disorder [Unknown]
  - Haemoglobin decreased [Unknown]
  - Melaena [Unknown]
  - Diarrhoea [Not Recovered/Not Resolved]
